FAERS Safety Report 7933272-7 (Version None)
Quarter: 2011Q4

REPORT INFORMATION
  Report Type: 
  Country: None (occurrence: None)
  Receive Date: 20111121
  Receipt Date: 20111121
  Transmission Date: 20120403
  Serious: Yes (Life-Threatening)
  Sender: FDA-Public Use
  Company Number: None

PATIENT
  Age: 18 Year
  Sex: Male
  Weight: 90.7194 kg

DRUGS (1)
  1. CEFEDROXIL [Suspect]
     Indication: ACNE
     Dosage: 500MGS 2X A DAY ORAL
     Route: 048
     Dates: start: 20110101, end: 20110901

REACTIONS (3)
  - APLASTIC ANAEMIA [None]
  - PLATELET COUNT DECREASED [None]
  - NEUTROPENIA [None]
